FAERS Safety Report 5628129-0 (Version None)
Quarter: 2008Q1

REPORT INFORMATION
  Report Type: 
  Country: None (occurrence: None)
  Receive Date: 20080215
  Receipt Date: 20080207
  Transmission Date: 20080703
  Serious: Yes (Hospitalization)
  Sender: FDA-Public Use
  Company Number: ES-ELI_LILLY_AND_COMPANY-ES200802001591

PATIENT
  Age: 75 Year
  Sex: Female

DRUGS (7)
  1. FORTEO [Suspect]
     Indication: OSTEOPOROSIS
     Dosage: 20 UG, UNKNOWN
     Route: 058
     Dates: start: 20071101
  2. ENALAPRIL MALEATE [Concomitant]
     Dosage: UNK, UNKNOWN
  3. NATECAL D [Concomitant]
     Dosage: UNK, UNKNOWN
  4. CITALOPRAM HYDROBROMIDE [Concomitant]
     Dosage: UNK, UNKNOWN
  5. ATROVENT [Concomitant]
     Dosage: UNK, UNKNOWN
  6. NOCTAMID [Concomitant]
     Dosage: UNK, UNKNOWN
  7. SEGURIL [Concomitant]
     Dosage: UNK, UNKNOWN

REACTIONS (2)
  - CARDIOPULMONARY FAILURE [None]
  - CONDITION AGGRAVATED [None]
